FAERS Safety Report 9332913 (Version 2)
Quarter: 2013Q2

REPORT INFORMATION
  Report Type: Spontaneous
  Country: IT (occurrence: IT)
  Receive Date: 20130606
  Receipt Date: 20130619
  Transmission Date: 20140414
  Serious: Yes (Hospitalization)
  Sender: FDA-Public Use
  Company Number: IT-EISAI INC-E7389-03866-SPO-IT

PATIENT
  Age: 58 Year
  Sex: Female

DRUGS (1)
  1. HALAVEN [Suspect]
     Indication: BREAST CANCER
     Route: 037
     Dates: start: 20121121, end: 20130509

REACTIONS (2)
  - Tracheobronchitis [Recovered/Resolved]
  - Febrile neutropenia [Recovered/Resolved]
